FAERS Safety Report 6571008-5 (Version None)
Quarter: 2010Q1

REPORT INFORMATION
  Report Type: 
  Country: None (occurrence: None)
  Receive Date: 20100204
  Receipt Date: 20100127
  Transmission Date: 20100710
  Serious: Yes (Death)
  Sender: FDA-Public Use
  Company Number: US-AMGEN-QUU388785

PATIENT
  Sex: Male

DRUGS (2)
  1. NPLATE [Suspect]
     Indication: MULTIPLE MYELOMA
     Dates: start: 20090112
  2. VELCADE [Concomitant]

REACTIONS (1)
  - DEATH [None]
